FAERS Safety Report 15656342 (Version 2)
Quarter: 2019Q3

REPORT INFORMATION
  Report Type: Report from Study
  Country: US (occurrence: US)
  Receive Date: 20181126
  Receipt Date: 20190723
  Transmission Date: 20191004
  Serious: Yes (Hospitalization)
  Sender: FDA-Public Use
  Company Number: US-PFIZER INC-2018476313

PATIENT
  Age: 66 Year
  Sex: Male
  Weight: 113.38 kg

DRUGS (25)
  1. BLINDED PF-06928316 [Suspect]
     Active Substance: INVESTIGATIONAL PRODUCT
     Indication: IMMUNISATION
     Dosage: SINGLE DOSE
     Route: 030
     Dates: start: 20181009, end: 20181009
  2. DEPA-TESTOSTERONE [Concomitant]
     Indication: HYPOGONADISM
     Dosage: UNK, SOLUTION
     Dates: start: 2008
  3. CLINDAMYCIN. [Concomitant]
     Active Substance: CLINDAMYCIN
     Indication: CELLULITIS
     Dosage: UNK,SOLUTION
     Dates: start: 20181029, end: 20181030
  4. NAPROXEN. [Concomitant]
     Active Substance: NAPROXEN
     Indication: ARTHRALGIA
  5. VANCOMYCIN [Concomitant]
     Active Substance: VANCOMYCIN
     Indication: CELLULITIS
     Dosage: UNK, SOLUTION
     Dates: start: 20181027, end: 20181029
  6. BLINDED INFLUENZA VACCINE [Suspect]
     Active Substance: INFLUENZA VIRUS VACCINE
     Indication: IMMUNISATION
     Dosage: SINGLE DOSE
     Route: 030
     Dates: start: 20181009, end: 20181009
  7. METHOCARBAMOL. [Concomitant]
     Active Substance: METHOCARBAMOL
     Indication: BACK PAIN
     Dosage: UNK
     Dates: start: 2001
  8. CALCIUM [Concomitant]
     Active Substance: CALCIUM
     Indication: NUTRITIONAL SUPPLEMENTATION
     Dosage: UNK
     Dates: start: 2013
  9. VITAMIN B12 [Concomitant]
     Active Substance: CYANOCOBALAMIN
     Indication: NUTRITIONAL SUPPLEMENTATION
     Dosage: UNK
     Dates: start: 2013
  10. LOVENOX [Concomitant]
     Active Substance: ENOXAPARIN SODIUM
     Indication: THROMBOSIS PROPHYLAXIS
     Dosage: UNK
     Dates: start: 20181028, end: 20181105
  11. NAPROXEN. [Concomitant]
     Active Substance: NAPROXEN
     Indication: ARTHRALGIA
  12. SULFAMETHOXAZOLE/TRIMETHOPRIM [Suspect]
     Active Substance: SULFAMETHOXAZOLE\TRIMETHOPRIM
     Indication: CELLULITIS
     Dosage: 1 TABLET, 2X/DAY
     Route: 048
     Dates: start: 20181030, end: 20181106
  13. GLIPIZIDE. [Concomitant]
     Active Substance: GLIPIZIDE
     Indication: TYPE 2 DIABETES MELLITUS
     Dosage: UNK
     Dates: start: 2001
  14. QUETIAPINE. [Concomitant]
     Active Substance: QUETIAPINE
     Indication: SCHIZOPHRENIA
     Dosage: UNK
     Dates: start: 2016
  15. PRAZOSIN. [Concomitant]
     Active Substance: PRAZOSIN
     Indication: PROPHYLAXIS
     Dosage: UNK
     Dates: start: 2016
  16. ZOSYN [Concomitant]
     Active Substance: PIPERACILLIN SODIUM\TAZOBACTAM SODIUM
     Indication: CELLULITIS
     Dosage: UNK, SOLUTION
     Dates: start: 20181027, end: 20181028
  17. NAPROXEN. [Concomitant]
     Active Substance: NAPROXEN
     Indication: BACK PAIN
     Dosage: UNK
     Dates: start: 20181023, end: 20181027
  18. NAPROXEN. [Concomitant]
     Active Substance: NAPROXEN
     Indication: MUSCULOSKELETAL PAIN
  19. BIOTIN [Concomitant]
     Active Substance: BIOTIN
     Indication: NUTRITIONAL SUPPLEMENTATION
     Dosage: UNK
     Dates: start: 2013
  20. NYSTATIN. [Concomitant]
     Active Substance: NYSTATIN
     Indication: RASH
     Dosage: UNK, POWDER
     Dates: start: 20181031
  21. HYDROXYZINE [Concomitant]
     Active Substance: HYDROXYZINE HYDROCHLORIDE
     Indication: ANXIETY
     Dosage: UNK
     Dates: start: 2001
  22. BLINDED PLACEBO [Suspect]
     Active Substance: INVESTIGATIONAL PRODUCT
     Indication: IMMUNISATION
     Dosage: SINGLE DOSE
     Route: 030
     Dates: start: 20181009, end: 20181009
  23. METOPROLOL. [Concomitant]
     Active Substance: METOPROLOL
     Indication: HYPERTENSION
     Dosage: UNK
     Dates: start: 2001
  24. NAPROXEN. [Concomitant]
     Active Substance: NAPROXEN
     Indication: BACK PAIN
     Dosage: UNK
     Dates: start: 2001, end: 20181022
  25. NAPROXEN. [Concomitant]
     Active Substance: NAPROXEN
     Indication: BACK PAIN
     Dosage: UNK
     Dates: start: 20181105

REACTIONS (1)
  - Acute kidney injury [Recovered/Resolved]

NARRATIVE: CASE EVENT DATE: 20181107
